FAERS Safety Report 6958327-5 (Version None)
Quarter: 2010Q3

REPORT INFORMATION
  Report Type: 
  Country: None (occurrence: None)
  Receive Date: 20100831
  Receipt Date: 20100827
  Transmission Date: 20110219
  Serious: Yes (Hospitalization)
  Sender: FDA-Public Use
  Company Number: B0671044A

PATIENT
  Sex: Female

DRUGS (8)
  1. AUGMENTIN '125' [Suspect]
     Indication: ERYSIPELAS
     Route: 048
     Dates: start: 20090625, end: 20090630
  2. ALLOPURINOL [Suspect]
     Indication: PRODUCT USED FOR UNKNOWN INDICATION
     Route: 048
     Dates: end: 20090701
  3. HEXOMEDINE [Suspect]
     Route: 061
     Dates: start: 20090613, end: 20090601
  4. BISEPTINE [Suspect]
     Indication: PRODUCT USED FOR UNKNOWN INDICATION
     Route: 061
     Dates: start: 20090625
  5. CYCLADOL [Suspect]
     Indication: POLYARTHRITIS
     Route: 048
     Dates: end: 20090630
  6. KARDEGIC [Suspect]
     Indication: PRODUCT USED FOR UNKNOWN INDICATION
     Route: 048
     Dates: start: 20060101, end: 20090630
  7. DT POLIO [Concomitant]
     Indication: PROPHYLAXIS
     Route: 065
     Dates: start: 20090627, end: 20090627
  8. DRESSING [Concomitant]
     Dates: start: 20090625

REACTIONS (6)
  - CHEILITIS [None]
  - HYPERSENSITIVITY [None]
  - NIKOLSKY'S SIGN [None]
  - RASH MACULAR [None]
  - SKIN LESION [None]
  - STEVENS-JOHNSON SYNDROME [None]
